FAERS Safety Report 7113965-4 (Version None)
Quarter: 2010Q4

REPORT INFORMATION
  Report Type: 
  Country: None (occurrence: None)
  Receive Date: 20101119
  Receipt Date: 20101117
  Transmission Date: 20110411
  Serious: Yes (Disabling)
  Sender: FDA-Public Use
  Company Number: A0887380A

PATIENT
  Age: 42 Year
  Sex: Female

DRUGS (4)
  1. VALACYCLOVIR [Suspect]
  2. VALTREX [Concomitant]
     Dosage: 1000MG THREE TIMES PER DAY
     Route: 048
     Dates: start: 20060101
  3. VICODIN [Concomitant]
  4. TYLENOL III [Concomitant]

REACTIONS (9)
  - ADVERSE EVENT [None]
  - AGITATION [None]
  - ATAXIA [None]
  - DRUG INEFFECTIVE [None]
  - HEADACHE [None]
  - HERPES SIMPLEX [None]
  - MENINGITIS [None]
  - PAIN [None]
  - PHOTOTHERAPY [None]
